FAERS Safety Report 18874070 (Version 2)
Quarter: 2021Q2

REPORT INFORMATION
  Report Type: Spontaneous
  Country: US (occurrence: US)
  Receive Date: 20210210
  Receipt Date: 20210524
  Transmission Date: 20210717
  Serious: Yes (Other)
  Sender: FDA-Public Use
  Company Number: US-SA-2021SA041212

PATIENT
  Sex: Female

DRUGS (1)
  1. AUBAGIO [Suspect]
     Active Substance: TERIFLUNOMIDE
     Indication: MULTIPLE SCLEROSIS
     Dosage: 14 MG, QD
     Route: 048
     Dates: start: 20191210

REACTIONS (6)
  - Nervous system disorder [Unknown]
  - Rash [Unknown]
  - Seborrhoeic dermatitis [Unknown]
  - Skin disorder [Unknown]
  - Hyperthyroidism [Unknown]
  - Paronychia [Unknown]

NARRATIVE: CASE EVENT DATE: 2019
